FAERS Safety Report 7431768 (Version 12)
Quarter: 2014Q2

REPORT INFORMATION
  Report Type: Spontaneous
  Country: US (occurrence: US)
  Receive Date: 20100624
  Receipt Date: 20140610
  Transmission Date: 20141212
  Serious: Yes (Hospitalization, Other)
  Sender: FDA-Public Use
  Company Number: US-BIOGENIDEC-2010BI019246

PATIENT
  Age: 60 Year
  Sex: Female
  Weight: 74 kg

DRUGS (14)
  1. TYSABRI [Suspect]
     Indication: MULTIPLE SCLEROSIS
     Route: 042
     Dates: start: 20041223, end: 2005
  2. TYSABRI [Suspect]
     Indication: MULTIPLE SCLEROSIS
     Route: 042
     Dates: start: 20060830, end: 20100429
  3. AMBIEN [Concomitant]
     Indication: INSOMNIA
     Route: 048
  4. LIPITOR [Concomitant]
  5. FOLATE [Concomitant]
  6. COQ10 [Concomitant]
  7. CALCIUM [Concomitant]
  8. MULTIVITAMIN [Concomitant]
  9. VITAMIN C [Concomitant]
  10. MAGNESIUM [Concomitant]
  11. B-COMPLEX [Concomitant]
  12. ASPIRIN [Concomitant]
     Route: 048
  13. RESTASIS [Concomitant]
     Indication: DRY EYE
     Route: 047
  14. ARTIFICIAL TEARS [Concomitant]
     Indication: DRY EYE

REACTIONS (6)
  - Progressive multifocal leukoencephalopathy [Recovered/Resolved]
  - Immune reconstitution inflammatory syndrome [Recovered/Resolved]
  - Constipation [Recovered/Resolved]
  - Dyspnoea [Recovered/Resolved]
  - Multiple sclerosis relapse [Not Recovered/Not Resolved]
  - Sinusitis [Unknown]
